FAERS Safety Report 14661117 (Version 1)
Quarter: 2018Q1

REPORT INFORMATION
  Report Type: Spontaneous
  Country: US (occurrence: US)
  Receive Date: 20180320
  Receipt Date: 20180320
  Transmission Date: 20180509
  Serious: No
  Sender: FDA-Public Use
  Company Number: US-PFIZER INC-2018116512

PATIENT
  Age: 40 Year
  Sex: Female

DRUGS (1)
  1. LYRICA [Suspect]
     Active Substance: PREGABALIN
     Dosage: 50 MG, UNK (50MG SAMPLES TAKEN FOR 6DAYS)

REACTIONS (6)
  - Swelling face [Unknown]
  - Dry skin [Unknown]
  - Eye swelling [Unknown]
  - Dry eye [Unknown]
  - Eye pruritus [Unknown]
  - Pruritus [Unknown]
